FAERS Safety Report 4514682-7 (Version None)
Quarter: 2004Q4

REPORT INFORMATION
  Report Type: 
  Country: None (occurrence: None)
  Receive Date: 20041126
  Receipt Date: 20041115
  Transmission Date: 20050328
  Serious: Yes (Life-Threatening, Hospitalization)
  Sender: FDA-Public Use
  Company Number: 105282ISR

PATIENT
  Age: 16 Year
  Sex: Female

DRUGS (5)
  1. ETOPOSIDE [Suspect]
     Dosage: 170 MILLIGRAM INTRAVENOUS (NOS)
     Route: 042
     Dates: start: 20040907, end: 20040911
  2. CARBOPLATIN [Suspect]
     Dosage: 670 MILLIGRAM INTRAVENOUS (NOS)
     Route: 042
     Dates: start: 20040907, end: 20040908
  3. IFOSFAMIDE [Suspect]
     Dosage: 3 GRAM INTRAVENOUS (NOS)
     Route: 042
     Dates: start: 20040907, end: 20040911
  4. MESNA [Concomitant]
  5. PEGFILFRASTIM (NEULASTA) [Concomitant]

REACTIONS (8)
  - BONE MARROW DEPRESSION [None]
  - CONFUSIONAL STATE [None]
  - CSF PROTEIN INCREASED [None]
  - FEBRILE NEUTROPENIA [None]
  - HALLUCINATION [None]
  - NEUROTOXICITY [None]
  - PERITONEAL CARCINOMA [None]
  - TREMOR [None]
